FAERS Safety Report 6496779-8 (Version None)
Quarter: 2009Q4

REPORT INFORMATION
  Report Type: 
  Country: None (occurrence: None)
  Receive Date: 20091125
  Receipt Date: 20090722
  Transmission Date: 20100525
  Serious: Yes (Hospitalization)
  Sender: FDA-Public Use
  Company Number: 2009BH011815

PATIENT
  Age: 75 Year
  Sex: Male

DRUGS (27)
  1. DIANEAL [Suspect]
     Indication: PERITONEAL DIALYSIS
     Dosage: 11.5 L;EVERY DAY;IP
     Route: 033
     Dates: start: 20060501, end: 20090528
  2. DIANEAL [Suspect]
     Indication: PERITONEAL DIALYSIS
     Dosage: 2 L;2X A WEEK;IP
     Route: 033
     Dates: start: 20060501, end: 20090528
  3. EPOGEN [Concomitant]
  4. HEPARIN [Concomitant]
  5. VENOFER [Concomitant]
  6. ZEMPLAR [Concomitant]
  7. CORRECTOL /OLD FORM/ [Concomitant]
  8. TYLENOL (CAPLET) [Concomitant]
  9. ALLOPURINOL [Concomitant]
  10. ARICEPT [Concomitant]
  11. WARFARIN [Concomitant]
  12. ROSUVASTATIN CALCIUM [Concomitant]
  13. FUROSEMIDE [Concomitant]
  14. HYDRALAZINE [Concomitant]
  15. LEXAPRO [Concomitant]
  16. MIRALAX [Concomitant]
  17. NEURONTIN [Concomitant]
  18. REGLAN [Concomitant]
  19. RENAGEL [Concomitant]
  20. SENSIPAR [Concomitant]
  21. SYNTHROID [Concomitant]
  22. TOPROL-XL [Concomitant]
  23. VITAMIN E [Concomitant]
  24. ZOLPIDEM [Concomitant]
  25. CLINORIL [Concomitant]
  26. LORTAB [Concomitant]
  27. AMBIEN [Concomitant]

REACTIONS (3)
  - CONSTIPATION [None]
  - PERITONEAL DIALYSIS COMPLICATION [None]
  - PERITONITIS BACTERIAL [None]
